FAERS Safety Report 22527968 (Version 2)
Quarter: 2025Q1

REPORT INFORMATION
  Report Type: Spontaneous
  Country: BR (occurrence: BR)
  Receive Date: 20230606
  Receipt Date: 20250114
  Transmission Date: 20250408
  Serious: No
  Sender: CELLTRION
  Company Number: BR-CELLTRION INC.-2023BR011416

PATIENT

DRUGS (6)
  1. INFLIXIMAB [Suspect]
     Active Substance: INFLIXIMAB
     Indication: Product used for unknown indication
  2. NORTRIPTYLINE [Concomitant]
     Active Substance: NORTRIPTYLINE
  3. CLONAZEPAM [Concomitant]
     Active Substance: CLONAZEPAM
  4. AZATHIOPRINE [Concomitant]
     Active Substance: AZATHIOPRINE
  5. FUROSEMIDE [Concomitant]
     Active Substance: FUROSEMIDE
  6. METOPROLOL SUCCINATE [Concomitant]
     Active Substance: METOPROLOL SUCCINATE

REACTIONS (4)
  - Decreased immune responsiveness [Unknown]
  - Influenza [Unknown]
  - Therapeutic response changed [Unknown]
  - Drug resistance [Unknown]
